FAERS Safety Report 23816691 (Version 1)
Quarter: 2024Q2

REPORT INFORMATION
  Report Type: Report from Study
  Country: IT (occurrence: IT)
  Receive Date: 20240504
  Receipt Date: 20240504
  Transmission Date: 20240716
  Serious: Yes (Life-Threatening, Other)
  Sender: FDA-Public Use
  Company Number: None

PATIENT
  Age: 64 Year
  Sex: Male
  Weight: 58 kg

DRUGS (2)
  1. PACLITAXEL [Suspect]
     Active Substance: PACLITAXEL
     Indication: Oesophageal adenocarcinoma
     Dosage: 80MG WEEKLY,  PACLITAXEL TEVA
     Route: 042
     Dates: start: 20240117, end: 20240117
  2. CARBOPLATIN [Concomitant]
     Active Substance: CARBOPLATIN
     Indication: Oesophageal adenocarcinoma
     Dosage: 250MG WEEKLY, ?CARBOPLATIN AHCL
     Route: 042
     Dates: start: 20240117, end: 20240117

REACTIONS (7)
  - Hypotension [Recovered/Resolved]
  - Choking sensation [Recovered/Resolved]
  - Anaphylactoid reaction [Recovered/Resolved]
  - Oxygen saturation decreased [Recovered/Resolved]
  - Erythema [Recovered/Resolved]
  - Hyperhidrosis [Recovered/Resolved]
  - Dyspnoea [Recovered/Resolved]

NARRATIVE: CASE EVENT DATE: 20240117
